FAERS Safety Report 7755617-3 (Version None)
Quarter: 2011Q3

REPORT INFORMATION
  Report Type: 
  Country: None (occurrence: None)
  Receive Date: 20110915
  Receipt Date: 20110915
  Transmission Date: 20111222
  Serious: Yes (Other)
  Sender: FDA-Public Use
  Company Number: None

PATIENT
  Age: 86 Year
  Sex: Female
  Weight: 63.5036 kg

DRUGS (1)
  1. CEFPODOXIME PROXETIL [Suspect]

REACTIONS (8)
  - PALPITATIONS [None]
  - FEELING COLD [None]
  - DIARRHOEA [None]
  - EYE INFLAMMATION [None]
  - VISION BLURRED [None]
  - CANDIDIASIS [None]
  - ABNORMAL SENSATION IN EYE [None]
  - CHILLS [None]
